FAERS Safety Report 5799460-3 (Version None)
Quarter: 2008Q3

REPORT INFORMATION
  Report Type: 
  Country: None (occurrence: None)
  Receive Date: 20080701
  Receipt Date: 20080701
  Transmission Date: 20090109
  Serious: Yes (Life-Threatening, Hospitalization)
  Sender: FDA-Public Use
  Company Number: None

PATIENT
  Age: 56 Year
  Sex: Male

DRUGS (2)
  1. PHENYTOIN [Suspect]
     Indication: BRAIN NEOPLASM MALIGNANT
     Dosage: 200 MG TID PO
     Route: 048
     Dates: start: 20080409, end: 20080502
  2. PHENYTOIN [Suspect]
     Indication: CONVULSION PROPHYLAXIS
     Dosage: 200 MG TID PO
     Route: 048
     Dates: start: 20080409, end: 20080502

REACTIONS (1)
  - STEVENS-JOHNSON SYNDROME [None]
